FAERS Safety Report 15538358 (Version 1)
Quarter: 2018Q4

REPORT INFORMATION
  Report Type: Report from Study
  Country: US (occurrence: US)
  Receive Date: 20181022
  Receipt Date: 20181022
  Transmission Date: 20190205
  Serious: Yes (Other)
  Sender: FDA-Public Use
  Company Number: US-BAYER-2018-177155

PATIENT
  Age: 68 Year
  Sex: Male

DRUGS (1)
  1. NEXAVAR [Suspect]
     Active Substance: SORAFENIB
     Indication: HEPATIC CANCER
     Dosage: 400 MG, BID
     Route: 048
     Dates: start: 20180917, end: 20180925

REACTIONS (18)
  - Pruritus [None]
  - Dysphonia [None]
  - Pain in extremity [None]
  - Blood pressure increased [Recovering/Resolving]
  - Oropharyngeal pain [None]
  - Cough [None]
  - Headache [Recovering/Resolving]
  - Skin exfoliation [Recovered/Resolved]
  - Dizziness [Not Recovered/Not Resolved]
  - Vision blurred [Not Recovered/Not Resolved]
  - Pre-existing condition improved [None]
  - Diarrhoea [Recovered/Resolved]
  - Peripheral swelling [Recovering/Resolving]
  - Blister [Recovering/Resolving]
  - Dry skin [Recovering/Resolving]
  - Rash pruritic [Not Recovered/Not Resolved]
  - Arthralgia [None]
  - Rash [None]

NARRATIVE: CASE EVENT DATE: 2018
